FAERS Safety Report 4322253-0 (Version None)
Quarter: 2004Q1

REPORT INFORMATION
  Report Type: 
  Country: None (occurrence: None)
  Receive Date: 20040323
  Receipt Date: 20040212
  Transmission Date: 20041129
  Serious: Yes (Other)
  Sender: FDA-Public Use
  Company Number: WAES 0402USA01019

PATIENT
  Age: 52 Year
  Sex: Female
  Weight: 52 kg

DRUGS (5)
  1. FOSAMAX [Suspect]
     Indication: OSTEOPOROSIS
     Route: 048
     Dates: start: 20020601, end: 20020701
  2. XANAX [Concomitant]
     Indication: ANXIETY
     Route: 048
  3. IMURAN [Concomitant]
     Indication: HEPATITIS
     Route: 048
  4. IMURAN [Concomitant]
     Indication: SJOGREN'S SYNDROME
     Route: 048
  5. ZOLOFT [Concomitant]
     Indication: DEPRESSION
     Route: 048

REACTIONS (6)
  - ABDOMINAL PAIN UPPER [None]
  - DYSPEPSIA [None]
  - GASTROOESOPHAGEAL REFLUX DISEASE [None]
  - NAUSEA [None]
  - SWELLING FACE [None]
  - SWOLLEN TONGUE [None]
